FAERS Safety Report 24269400 (Version 1)
Quarter: 2024Q3

REPORT INFORMATION
  Report Type: Spontaneous
  Country: US (occurrence: US)
  Receive Date: 20240830
  Receipt Date: 20240830
  Transmission Date: 20241017
  Serious: Yes (Other)
  Sender: TEVA
  Company Number: US-TEVA-VS-3235944

PATIENT
  Age: 64 Year
  Sex: Male

DRUGS (2)
  1. TIAGABINE HYDROCHLORIDE [Suspect]
     Active Substance: TIAGABINE HYDROCHLORIDE
     Indication: Anxiety
     Route: 065
     Dates: start: 2024
  2. KLONOPIN [Concomitant]
     Active Substance: CLONAZEPAM
     Indication: Product used for unknown indication

REACTIONS (8)
  - Dizziness [Not Recovered/Not Resolved]
  - Head discomfort [Not Recovered/Not Resolved]
  - Drug effect less than expected [Unknown]
  - Tension [Not Recovered/Not Resolved]
  - Tremor [Not Recovered/Not Resolved]
  - Feeling abnormal [Not Recovered/Not Resolved]
  - Agitation [Not Recovered/Not Resolved]
  - Product substitution issue [Unknown]

NARRATIVE: CASE EVENT DATE: 20240101
